FAERS Safety Report 18668477 (Version 2)
Quarter: 2021Q1

REPORT INFORMATION
  Report Type: Report from Study
  Country: US (occurrence: US)
  Receive Date: 20201228
  Receipt Date: 20210106
  Transmission Date: 20210419
  Serious: No
  Sender: FDA-Public Use
  Company Number: US-BIOVITRUM-2020US7811

PATIENT
  Age: 27 Year
  Sex: Female

DRUGS (1)
  1. KINERET [Suspect]
     Active Substance: ANAKINRA
     Indication: STILL^S DISEASE
     Route: 058
     Dates: start: 20201207

REACTIONS (10)
  - Headache [Unknown]
  - Eye infection [Unknown]
  - Sinusitis [Unknown]
  - Asthenia [Unknown]
  - Eye swelling [Unknown]
  - Injection site pain [Unknown]
  - Head discomfort [Unknown]
  - Lymphocyte count increased [Unknown]
  - Lacrimation increased [Unknown]
  - Off label use [Unknown]

NARRATIVE: CASE EVENT DATE: 20201207
